FAERS Safety Report 4674659-8 (Version None)
Quarter: 2005Q2

REPORT INFORMATION
  Report Type: 
  Country: None (occurrence: None)
  Receive Date: 20050526
  Receipt Date: 20040115
  Transmission Date: 20051028
  Serious: Yes (Life-Threatening, Hospitalization)
  Sender: FDA-Public Use
  Company Number: FR-GLAXOSMITHKLINE-B0319898A

PATIENT
  Age: 21 Year
  Sex: Female

DRUGS (2)
  1. LAMICTAL [Suspect]
     Indication: EPILEPSY
     Dosage: 25MG PER DAY
     Route: 048
     Dates: start: 20030723, end: 20030726
  2. DEPAKENE [Suspect]
     Indication: EPILEPSY
     Dosage: 1.5G PER DAY
     Route: 048

REACTIONS (7)
  - ALANINE AMINOTRANSFERASE INCREASED [None]
  - ASPARTATE AMINOTRANSFERASE INCREASED [None]
  - HEADACHE [None]
  - LYMPHADENOPATHY [None]
  - PROTHROMBIN LEVEL DECREASED [None]
  - PYREXIA [None]
  - RASH MACULAR [None]
